FAERS Safety Report 8299714-5 (Version None)
Quarter: 2012Q2

REPORT INFORMATION
  Report Type: 
  Country: None (occurrence: None)
  Receive Date: 20120419
  Receipt Date: 20120410
  Transmission Date: 20120825
  Serious: Yes (Hospitalization, Other)
  Sender: FDA-Public Use
  Company Number: CA-ROCHE-GNE292959

PATIENT
  Sex: Female
  Weight: 90.797 kg

DRUGS (8)
  1. OXEZE [Concomitant]
     Indication: PRODUCT USED FOR UNKNOWN INDICATION
  2. SYMBICORT [Concomitant]
     Indication: PRODUCT USED FOR UNKNOWN INDICATION
     Dosage: 8 PUFF, QD, DOSE=8 PUFF, DAILY DOSE=8 PUFF
  3. XOLAIR [Suspect]
     Dosage: 375 MG, Q2W
     Route: 058
     Dates: start: 20091207
  4. CORTISONE ACETATE [Concomitant]
     Indication: PRODUCT USED FOR UNKNOWN INDICATION
     Dosage: 30 MG, UNK
  5. XOLAIR [Suspect]
     Dosage: 375 MG, Q2W
     Dates: start: 20091124
  6. XOLAIR [Suspect]
     Indication: ASTHMA
     Dosage: 375 MG, Q2W
     Route: 058
     Dates: start: 20060104
  7. XOLAIR [Suspect]
     Dosage: 375 MG, Q2W
     Route: 058
     Dates: start: 20060105
  8. PULMICORT [Concomitant]
     Indication: PRODUCT USED FOR UNKNOWN INDICATION

REACTIONS (11)
  - INFLUENZA [None]
  - EYE IRRITATION [None]
  - CYANOSIS [None]
  - WEIGHT INCREASED [None]
  - INSOMNIA [None]
  - MIGRAINE [None]
  - FATIGUE [None]
  - HEADACHE [None]
  - ASTHMA [None]
  - HYPERSENSITIVITY [None]
  - HYPERHIDROSIS [None]
